FAERS Safety Report 25322676 (Version 1)
Quarter: 2025Q2

REPORT INFORMATION
  Report Type: Report from Study
  Country: GB (occurrence: GB)
  Receive Date: 20250516
  Receipt Date: 20250516
  Transmission Date: 20250716
  Serious: Yes (Life-Threatening, Hospitalization, Other)
  Sender: SANDOZ
  Company Number: GB-002147023-NVSC2020GB289186

PATIENT
  Sex: Male

DRUGS (2)
  1. OMNITROPE [Suspect]
     Active Substance: SOMATROPIN
     Indication: Hypopituitarism
     Dosage: 0.3 MG, QD
     Route: 065
     Dates: start: 20151027
  2. OMNITROPE [Suspect]
     Active Substance: SOMATROPIN
     Dosage: 0.5 MG, QD,SUREPAL 5
     Route: 058

REACTIONS (3)
  - Feeling abnormal [Unknown]
  - Cardiac disorder [Unknown]
  - Cardiac disorder [Unknown]
